FAERS Safety Report 14272795 (Version 1)
Quarter: 2017Q4

REPORT INFORMATION
  Report Type: Spontaneous
  Country: US (occurrence: US)
  Receive Date: 20171211
  Receipt Date: 20171211
  Transmission Date: 20180321
  Serious: Yes (Other)
  Sender: FDA-Public Use
  Company Number: US-OTSUKA-2017_002491

PATIENT
  Age: 60 Year

DRUGS (1)
  1. ABILIFY [Suspect]
     Active Substance: ARIPIPRAZOLE
     Indication: MAJOR DEPRESSION
     Dosage: UNK
     Route: 065
     Dates: start: 20080804, end: 20160204

REACTIONS (8)
  - Trichotillomania [Unknown]
  - Tardive dyskinesia [Unknown]
  - Gambling disorder [Unknown]
  - Suicide attempt [Unknown]
  - Type 2 diabetes mellitus [Unknown]
  - Suicidal ideation [Unknown]
  - Excoriation [Unknown]
  - Obsessive-compulsive disorder [Unknown]

NARRATIVE: CASE EVENT DATE: 20130208
